FAERS Safety Report 14546181 (Version 2)
Quarter: 2018Q2

REPORT INFORMATION
  Report Type: Spontaneous
  Country: US (occurrence: US)
  Receive Date: 20180219
  Receipt Date: 20180504
  Transmission Date: 20180711
  Serious: Yes (Life-Threatening, Hospitalization)
  Sender: FDA-Public Use
  Company Number: US-JNJFOC-20180224289

PATIENT
  Age: 33 Year
  Sex: Female

DRUGS (3)
  1. INVOKANA [Suspect]
     Active Substance: CANAGLIFLOZIN
     Indication: TYPE 2 DIABETES MELLITUS
     Route: 048
     Dates: end: 20160906
  2. INVOKANA [Suspect]
     Active Substance: CANAGLIFLOZIN
     Indication: TYPE 2 DIABETES MELLITUS
     Route: 048
     Dates: start: 20140520
  3. INVOKANA [Suspect]
     Active Substance: CANAGLIFLOZIN
     Indication: TYPE 2 DIABETES MELLITUS
     Route: 048
     Dates: start: 2016

REACTIONS (7)
  - Renal tubular necrosis [Recovering/Resolving]
  - Acute kidney injury [Recovered/Resolved]
  - Vulvovaginal mycotic infection [Unknown]
  - Toe amputation [Recovering/Resolving]
  - Peripheral ischaemia [Recovering/Resolving]
  - Diabetic foot [Recovering/Resolving]
  - Dry gangrene [Recovering/Resolving]

NARRATIVE: CASE EVENT DATE: 20160725
